FAERS Safety Report 7594277-1 (Version None)
Quarter: 2011Q3

REPORT INFORMATION
  Report Type: 
  Country: None (occurrence: None)
  Receive Date: 20110706
  Receipt Date: 20110627
  Transmission Date: 20111222
  Serious: Yes (Other)
  Sender: FDA-Public Use
  Company Number: DE-ASTRAZENECA-2011SE39893

PATIENT
  Sex: Female

DRUGS (4)
  1. ATACAND HCT [Suspect]
     Dosage: 16/12.5 MG, 1 DF DAILY
     Route: 048
     Dates: start: 20090101
  2. BETABLOCKER [Concomitant]
  3. ATACAND HCT [Suspect]
     Dosage: 16/12.5 MG, 0.5 DF DAILY
     Route: 048
     Dates: start: 20060101
  4. ATACAND [Suspect]
     Route: 048
     Dates: start: 20060101

REACTIONS (7)
  - HEADACHE [None]
  - ARTHRALGIA [None]
  - PARAESTHESIA [None]
  - BLOOD SODIUM DECREASED [None]
  - OEDEMA PERIPHERAL [None]
  - THROMBOSIS [None]
  - MYALGIA [None]
